FAERS Safety Report 10210916 (Version 2)
Quarter: 2014Q2

REPORT INFORMATION
  Report Type: Spontaneous
  Country: FR (occurrence: FR)
  Receive Date: 20140602
  Receipt Date: 20140605
  Transmission Date: 20141212
  Serious: Yes (Other)
  Sender: FDA-Public Use
  Company Number: PHHY2014FR065551

PATIENT
  Sex: Female

DRUGS (3)
  1. TEGRETOL [Suspect]
     Indication: BIPOLAR DISORDER
     Dosage: 200 MG, BID
     Route: 048
     Dates: end: 20140526
  2. TEGRETOL [Suspect]
     Dosage: 200 MG, BID
     Route: 048
  3. TEGRETOL [Suspect]
     Indication: BIPOLAR DISORDER
     Dosage: 4 ML, BID IN THE MORNING AND EVENING
     Route: 048
     Dates: start: 20140526

REACTIONS (5)
  - Drug dependence [Unknown]
  - Throat irritation [Recovering/Resolving]
  - Oral discomfort [Recovering/Resolving]
  - Feeling drunk [Unknown]
  - Insomnia [Not Recovered/Not Resolved]
